FAERS Safety Report 9901325 (Version 1)
Quarter: 2014Q1

REPORT INFORMATION
  Report Type: Spontaneous
  Country: US (occurrence: US)
  Receive Date: 20140217
  Receipt Date: 20140217
  Transmission Date: 20141002
  Serious: No
  Sender: FDA-Public Use
  Company Number: US-BAYER-2014-019717

PATIENT
  Age: 54 Year
  Sex: Female

DRUGS (1)
  1. CLIMARA PRO [Suspect]
     Indication: HOT FLUSH
     Dosage: UNK
     Dates: start: 2013

REACTIONS (6)
  - Medication error [None]
  - Polymenorrhoea [None]
  - Breast tenderness [None]
  - Abdominal distension [None]
  - Fatigue [None]
  - Drug ineffective [None]
